FAERS Safety Report 4677106-5 (Version None)
Quarter: 2005Q2

REPORT INFORMATION
  Report Type: 
  Country: None (occurrence: None)
  Receive Date: 20050525
  Receipt Date: 20050525
  Transmission Date: 20051028
  Serious: Yes (Life-Threatening, Hospitalization)
  Sender: FDA-Public Use
  Company Number: None

PATIENT
  Sex: Male

DRUGS (1)
  1. RELAFEN [Suspect]
     Indication: PAIN
     Dosage: 1500MG   ONCE DAILY   ORAL
     Route: 048
     Dates: start: 20050520, end: 20050523

REACTIONS (6)
  - ANGIONEUROTIC OEDEMA [None]
  - NASAL CONGESTION [None]
  - RASH PRURITIC [None]
  - SINUS HEADACHE [None]
  - SINUSITIS [None]
  - URTICARIA [None]
